FAERS Safety Report 4765800-7 (Version None)
Quarter: 2005Q3

REPORT INFORMATION
  Report Type: 
  Country: None (occurrence: None)
  Receive Date: 20050912
  Receipt Date: 20050712
  Transmission Date: 20060218
  Serious: Yes (Other)
  Sender: FDA-Public Use
  Company Number: PHNU2005DE02523

PATIENT
  Age: 62 Year
  Sex: Male
  Weight: 168 kg

DRUGS (3)
  1. ASPIRIN [Concomitant]
     Dosage: 1 DF, QD
  2. EZETROL [Suspect]
     Indication: HYPERCHOLESTEROLAEMIA
     Dosage: 1 DF, QD
     Dates: start: 20050708
  3. LAMISIL [Suspect]
     Indication: NAIL TINEA
     Dosage: 1 DF, QD
     Route: 048
     Dates: start: 20050601, end: 20050701

REACTIONS (1)
  - BLOOD CREATINE PHOSPHOKINASE INCREASED [None]
